FAERS Safety Report 10961715 (Version 1)
Quarter: 2015Q1

REPORT INFORMATION
  Report Type: Spontaneous
  Country: US (occurrence: None)
  Receive Date: 20150326
  Receipt Date: 20150326
  Transmission Date: 20150721
  Serious: Yes (Other)
  Sender: FDA-Public Use
  Company Number: None

PATIENT
  Age: 22 Year
  Sex: Female
  Weight: 72.58 kg

DRUGS (4)
  1. IBUPROFEN. [Concomitant]
     Active Substance: IBUPROFEN
  2. EXCEDRIN [Concomitant]
     Active Substance: ACETAMINOPHEN\ASPIRIN\CAFFEINE
  3. BENADRILL [Concomitant]
  4. TOPAMAX [Suspect]
     Active Substance: TOPIRAMATE
     Indication: MIGRAINE
     Dosage: 1-2 PILLS
     Route: 048
     Dates: start: 20150320, end: 20150323

REACTIONS (13)
  - Palpitations [None]
  - Impaired work ability [None]
  - Tremor [None]
  - Abdominal pain [None]
  - Activities of daily living impaired [None]
  - Feeling abnormal [None]
  - Crying [None]
  - Fatigue [None]
  - Thinking abnormal [None]
  - Asthenia [None]
  - Gait disturbance [None]
  - Psychomotor skills impaired [None]
  - Chest pain [None]

NARRATIVE: CASE EVENT DATE: 20150323
